FAERS Safety Report 21147604 (Version 1)
Quarter: 2022Q3

REPORT INFORMATION
  Report Type: Spontaneous
  Country: CA (occurrence: CA)
  Receive Date: 20220729
  Receipt Date: 20220729
  Transmission Date: 20221027
  Serious: Yes (Other)
  Sender: FDA-Public Use
  Company Number: CA-ROCHE-3142687

PATIENT
  Age: 55 Year
  Sex: Male

DRUGS (14)
  1. CLONAZEPAM [Interacting]
     Active Substance: CLONAZEPAM
     Indication: Depression
     Dosage: DRUG DOSE FIRST ADMINISTERED IS NOT PROVIDED
  2. LITHIUM CARBONATE [Interacting]
     Active Substance: LITHIUM CARBONATE
     Indication: Depression
     Dosage: DRUG DOSE FIRST ADMINISTERED IS NOT PROVIDED
  3. OLANZAPINE [Interacting]
     Active Substance: OLANZAPINE
     Indication: Depression
     Dosage: DRUG DOSE FIRST ADMINISTERED IS NOT PROVIDED
  4. RISPERIDONE [Interacting]
     Active Substance: RISPERIDONE
     Indication: Depression
     Dosage: DRUG DOSE FIRST ADMINISTERED IS NOT PROVIDED
  5. RALTEGRAVIR [Interacting]
     Active Substance: RALTEGRAVIR
     Indication: HIV infection
     Dosage: ONCE IN 12 HOURS
  6. DEXEDRINE [Interacting]
     Active Substance: DEXTROAMPHETAMINE SULFATE
     Indication: Depression
     Dosage: DRUG DOSE FIRST ADMINISTERED IS NOT PROVIDED
  7. BUPROPION [Interacting]
     Active Substance: BUPROPION
     Indication: Depression
     Dosage: DRUG DOSE FIRST ADMINISTERED IS NOT PROVIDED
  8. LORAZEPAM [Interacting]
     Active Substance: LORAZEPAM
     Indication: Depression
     Dosage: DRUG DOSE FIRST ADMINISTERED IS NOT PROVIDED
  9. PAROXETINE [Interacting]
     Active Substance: PAROXETINE
     Indication: Depression
     Dosage: DRUG DOSE FIRST ADMINISTERED IS NOT PROVIDED
  10. EMTRICITABINE [Concomitant]
     Active Substance: EMTRICITABINE
     Indication: HIV infection
     Dosage: DRUG DOSE FIRST ADMINISTERED IS NOT PROVIDED
  11. PREZISTA [Concomitant]
     Active Substance: DARUNAVIR ETHANOLATE
     Indication: HIV infection
  12. ZIAGEN [Concomitant]
     Active Substance: ABACAVIR SULFATE
     Indication: HIV infection
  13. VIRAMUNE [Concomitant]
     Active Substance: NEVIRAPINE
     Indication: HIV infection
  14. LAMIVUDINE [Concomitant]
     Active Substance: LAMIVUDINE
     Indication: HIV infection

REACTIONS (3)
  - Psychiatric decompensation [Unknown]
  - Drug interaction [Unknown]
  - Product use in unapproved indication [Unknown]
